FAERS Safety Report 4570645-7 (Version None)
Quarter: 2005Q1

REPORT INFORMATION
  Report Type: 
  Country: None (occurrence: None)
  Receive Date: 20050202
  Receipt Date: 20050118
  Transmission Date: 20050727
  Serious: Yes (Death, Hospitalization)
  Sender: FDA-Public Use
  Company Number: MK200501-0170-1

PATIENT
  Age: 42 Year
  Sex: Female

DRUGS (1)
  1. OPTIRAY 320 [Suspect]
     Indication: COMPUTERISED TOMOGRAM
     Dosage: 100 ML, ONCE, IV
     Route: 042
     Dates: start: 20041116, end: 20041116

REACTIONS (9)
  - BLOOD PRESSURE ABNORMAL [None]
  - COMA [None]
  - CONTRAST MEDIA REACTION [None]
  - ERYTHEMA [None]
  - GENERAL PHYSICAL HEALTH DETERIORATION [None]
  - POST PROCEDURAL COMPLICATION [None]
  - PRURITUS [None]
  - TRACHEO-OESOPHAGEAL FISTULA [None]
  - TRACHEOSTOMY [None]
